FAERS Safety Report 9000275 (Version 1)
Quarter: 2013Q1

REPORT INFORMATION
  Report Type: Spontaneous
  Country: US (occurrence: None)
  Receive Date: 20130102
  Receipt Date: 20130102
  Transmission Date: 20140127
  Serious: Yes (Life-Threatening, Hospitalization)
  Sender: FDA-Public Use
  Company Number: None

PATIENT
  Age: 64 Year
  Sex: Male
  Weight: 131.4 kg

DRUGS (2)
  1. INSULIN [Suspect]
     Indication: DIABETES MELLITUS
     Dosage: 260 IU BID SQ
     Route: 058
     Dates: start: 20120622
  2. METFORMIN [Suspect]
     Dosage: 1000 MG BID PO
     Route: 048
     Dates: start: 20030310

REACTIONS (1)
  - Hypoglycaemia [None]
